FAERS Safety Report 5081667-4 (Version None)
Quarter: 2006Q3

REPORT INFORMATION
  Report Type: 
  Country: None (occurrence: None)
  Receive Date: 20060816
  Receipt Date: 20060717
  Transmission Date: 20061208
  Serious: Yes (Other)
  Sender: FDA-Public Use
  Company Number: PHEH2006US09185

PATIENT
  Age: 70 Year
  Sex: Male

DRUGS (8)
  1. ZOMETA [Suspect]
     Indication: METASTASES TO BONE
     Dosage: 4 MG EVERY 4 WEEKS
     Dates: start: 20020401, end: 20030401
  2. ZOMETA [Suspect]
     Dosage: UNK, UNK
     Dates: start: 20051103, end: 20060615
  3. LUPRON [Concomitant]
  4. MOBIC [Concomitant]
     Dosage: 15 MG, QD
  5. ASPIRIN [Concomitant]
     Dosage: 81 MG, QD
  6. FLUTAMIDE [Concomitant]
     Dosage: 125 MG X 2 CAPS, TID
  7. PRILOSEC [Concomitant]
     Dosage: 20 MG, QD
  8. SIMVASTATIN [Concomitant]
     Dosage: 40 MG 1/2 TAB, QD

REACTIONS (15)
  - BONE LESION [None]
  - DENTAL CARIES [None]
  - ERYTHEMA [None]
  - GINGIVAL INFECTION [None]
  - IMPAIRED HEALING [None]
  - MALIGNANT NEOPLASM PROGRESSION [None]
  - OSTEOMYELITIS [None]
  - PAIN [None]
  - PERIODONTAL DISEASE [None]
  - SINUS DISORDER [None]
  - SOFT TISSUE INFECTION [None]
  - TOOTH ABSCESS [None]
  - TOOTH DISORDER [None]
  - TOOTH REPAIR [None]
  - TOOTH RESORPTION [None]
